FAERS Safety Report 24901705 (Version 1)
Quarter: 2025Q1

REPORT INFORMATION
  Report Type: Spontaneous
  Country: US (occurrence: US)
  Receive Date: 20250129
  Receipt Date: 20250129
  Transmission Date: 20250409
  Serious: No
  Sender: SANOFI AVENTIS
  Company Number: US-SA-2025SA026882

PATIENT
  Age: 6 Year
  Sex: Female

DRUGS (1)
  1. DUPIXENT [Suspect]
     Active Substance: DUPILUMAB
     Indication: Dermatitis allergic
     Dosage: 300 MG, Q4W
     Dates: start: 202410

REACTIONS (6)
  - Dermatitis [Unknown]
  - Erythema [Unknown]
  - Arthralgia [Unknown]
  - Injection site pain [Unknown]
  - Dermatitis allergic [Unknown]
  - Condition aggravated [Unknown]
